FAERS Safety Report 17502881 (Version 2)
Quarter: 2020Q1

REPORT INFORMATION
  Report Type: Report from Study
  Country: PT (occurrence: PT)
  Receive Date: 20200305
  Receipt Date: 20200306
  Transmission Date: 20200409
  Serious: Yes (Hospitalization)
  Sender: FDA-Public Use
  Company Number: PT-ROCHE-2460093

PATIENT
  Age: 46 Year
  Sex: Female
  Weight: 69 kg

DRUGS (3)
  1. TRASTUZUMAB EMTANSINE [Suspect]
     Active Substance: ADO-TRASTUZUMAB EMTANSINE
     Indication: BREAST CANCER
     Dosage: MOST RECENT DOSE PRIOR TO THE EVENT: 04/SEP/2019 AND 04/JUL/2019
     Route: 042
     Dates: start: 20190628
  2. SULFAMETHOXAZOLE/TRIMETHOPRIM [Concomitant]
     Active Substance: SULFAMETHOXAZOLE\TRIMETHOPRIM
     Route: 065
     Dates: start: 20190828, end: 20190910
  3. CIPROFLOXACIN. [Concomitant]
     Active Substance: CIPROFLOXACIN
     Indication: SKIN NECROSIS
     Dosage: ONGOING = NOT CHECKED
     Route: 065
     Dates: start: 20190916, end: 20190923

REACTIONS (1)
  - Skin necrosis [Recovered/Resolved]

NARRATIVE: CASE EVENT DATE: 20190916
